FAERS Safety Report 7686619-3 (Version None)
Quarter: 2011Q3

REPORT INFORMATION
  Report Type: 
  Country: None (occurrence: None)
  Receive Date: 20110816
  Receipt Date: 20110816
  Transmission Date: 20111222
  Serious: Yes (Hospitalization, Other)
  Sender: FDA-Public Use
  Company Number: None

PATIENT
  Age: 53 Year
  Sex: Male
  Weight: 90.718 kg

DRUGS (1)
  1. VANCOMYCIN [Suspect]
     Indication: TENOSYNOVITIS
     Dosage: 2 GRAMS
     Route: 042
     Dates: start: 20110717, end: 20110810

REACTIONS (3)
  - RENAL FAILURE ACUTE [None]
  - DRUG LEVEL INCREASED [None]
  - TUBULOINTERSTITIAL NEPHRITIS [None]
